FAERS Safety Report 9560348 (Version 1)
Quarter: 2013Q3

REPORT INFORMATION
  Report Type: Spontaneous
  Country: US (occurrence: None)
  Receive Date: 20130906
  Receipt Date: 20130906
  Transmission Date: 20140515
  Serious: Yes (Hospitalization, Other)
  Sender: FDA-Public Use
  Company Number: 163-POMAL-13050339

PATIENT
  Age: 78 Year
  Sex: Male

DRUGS (14)
  1. POMALYST [Suspect]
     Indication: PLASMA CELL MYELOMA
     Dosage: 4 MG, CAPSULE, 21 IN 28 D, PO
     Dates: start: 20130405
  2. SULFAMETHOXAZOLE/TRIMETHOPRIM (BACTRIM) [Concomitant]
  3. ASPIRIN (ACETYLSALICYLIC ACID) [Concomitant]
  4. CYMBALTA (DULOXETINE HYDROCHLORIDE) [Concomitant]
  5. DILTIAZEM HCL [Concomitant]
  6. DOXAZOSIN MESYLATE [Concomitant]
  7. GABAPENTIN [Concomitant]
  8. HYDROCODONE-ACETAMINOPHEN (VICODIN) [Concomitant]
  9. LEVOTHYROXINE SODIUM [Concomitant]
  10. PREVACID (LANSOPRAZOLE) [Concomitant]
  11. PROAIR HFA (SALBUTAMOL SULFATE) [Concomitant]
  12. PROMETHAZINE HCL [Concomitant]
  13. VITAMIN B-6 (PYRIDOXINE HYDROCHLORIDE) [Concomitant]
  14. VITAMIN D (ERGOCALCIFEROL) [Concomitant]

REACTIONS (1)
  - Febrile neutropenia [None]
